FAERS Safety Report 16395963 (Version 2)
Quarter: 2021Q1

REPORT INFORMATION
  Report Type: Spontaneous
  Country: US (occurrence: US)
  Receive Date: 20190605
  Receipt Date: 20210303
  Transmission Date: 20210419
  Serious: No
  Sender: FDA-Public Use
  Company Number: US-ELI_LILLY_AND_COMPANY-US201905010426

PATIENT
  Age: 57 Year
  Sex: Female
  Weight: 61 kg

DRUGS (15)
  1. VAGIFEM [Concomitant]
     Active Substance: ESTRADIOL
  2. FIORINAL [ACETYLSALICYLIC ACID;BUTALBITAL;CAF [Concomitant]
     Dosage: UNK, PRN
  3. EMGALITY [Suspect]
     Active Substance: GALCANEZUMAB-GNLM
     Indication: PRODUCT USED FOR UNKNOWN INDICATION
     Dosage: 240 MG, SINGLE
     Route: 058
     Dates: start: 20181125
  4. EMGALITY [Suspect]
     Active Substance: GALCANEZUMAB-GNLM
     Dosage: 120 MG, MONTHLY (1/M)
     Route: 058
     Dates: start: 20181223
  5. CYPROHEPTADINE. [Concomitant]
     Active Substance: CYPROHEPTADINE
  6. MONTELUKAST [Concomitant]
     Active Substance: MONTELUKAST SODIUM
  7. ASA [Concomitant]
     Active Substance: ASPIRIN
  8. NEBIVOLOL. [Concomitant]
     Active Substance: NEBIVOLOL
  9. ATORVASTATIN [Concomitant]
     Active Substance: ATORVASTATIN
  10. DOCUSATE [Concomitant]
     Active Substance: DOCUSATE
  11. ZOFRAN [Concomitant]
     Active Substance: ONDANSETRON HYDROCHLORIDE
  12. GABAPENTIN. [Concomitant]
     Active Substance: GABAPENTIN
     Indication: PRODUCT USED FOR UNKNOWN INDICATION
  13. VITAMIN D2 + CALCIUM [CALCIUM;ERGOCALCIFEROL] [Concomitant]
  14. FROVATRIPTAN. [Concomitant]
     Active Substance: FROVATRIPTAN
  15. TOPIRAMATE. [Concomitant]
     Active Substance: TOPIRAMATE

REACTIONS (5)
  - Injection site urticaria [Recovered/Resolved]
  - Migraine [Recovered/Resolved]
  - Injection site pruritus [Recovered/Resolved]
  - Injection site pain [Recovering/Resolving]
  - Injection site erythema [Unknown]

NARRATIVE: CASE EVENT DATE: 20190517
